FAERS Safety Report 6815074-8 (Version None)
Quarter: 2010Q2

REPORT INFORMATION
  Report Type: 
  Country: None (occurrence: None)
  Receive Date: 20100630
  Receipt Date: 20100630
  Transmission Date: 20101027
  Serious: Yes (Life-Threatening, Hospitalization)
  Sender: FDA-Public Use
  Company Number: None

PATIENT
  Age: 21 Year
  Sex: Female
  Weight: 56.6996 kg

DRUGS (4)
  1. YASMIN [Suspect]
     Indication: DYSMENORRHOEA
     Dosage: 21 DAYS ON 7 OFF PO
     Route: 048
     Dates: start: 20060828, end: 20090128
  2. YASMIN [Suspect]
     Indication: VOMITING
     Dosage: 21 DAYS ON 7 OFF PO
     Route: 048
     Dates: start: 20060828, end: 20090128
  3. OCELLA DRSP 3MG EE .03 MG BAYER HEALTHCARE PHARMACEUTICALS [Suspect]
     Indication: DYSMENORRHOEA
     Dosage: 21 DAYS ON 7 OFF PO
     Route: 048
     Dates: start: 20090528, end: 20090819
  4. OCELLA DRSP 3MG EE .03 MG BAYER HEALTHCARE PHARMACEUTICALS [Suspect]
     Indication: VOMITING
     Dosage: 21 DAYS ON 7 OFF PO
     Route: 048
     Dates: start: 20090528, end: 20090819

REACTIONS (4)
  - COLLAPSE OF LUNG [None]
  - DEEP VEIN THROMBOSIS [None]
  - PROCEDURAL COMPLICATION [None]
  - SURGERY [None]
